FAERS Safety Report 7777244-4 (Version None)
Quarter: 2011Q3

REPORT INFORMATION
  Report Type: 
  Country: None (occurrence: None)
  Receive Date: 20110926
  Receipt Date: 20110912
  Transmission Date: 20111222
  Serious: Yes (Other)
  Sender: FDA-Public Use
  Company Number: PHHY2011DE81818

PATIENT

DRUGS (4)
  1. AMLODIPINE [Concomitant]
  2. MORFINE [Concomitant]
     Dosage: UNK
     Dates: start: 20060101
  3. RASILEZ [Suspect]
     Dosage: 1 DF, QD
  4. BETA BLOCKING AGENTS [Concomitant]
     Dosage: UNK

REACTIONS (2)
  - BLOOD CREATININE INCREASED [None]
  - RENAL FAILURE [None]
